FAERS Safety Report 6644688-3 (Version None)
Quarter: 2010Q1

REPORT INFORMATION
  Report Type: 
  Country: None (occurrence: None)
  Receive Date: 20100322
  Receipt Date: 20100312
  Transmission Date: 20100710
  Serious: Yes (Hospitalization)
  Sender: FDA-Public Use
  Company Number: FR-BRISTOL-MYERS SQUIBB COMPANY-15017585

PATIENT
  Age: 69 Year
  Sex: Female

DRUGS (11)
  1. COAPROVEL [Suspect]
     Dosage: 1 DF= IRBESARTAN 300MG/
     Dates: end: 20100123
  2. ARIMIDEX [Suspect]
     Dates: end: 20100123
  3. ACTONEL [Suspect]
     Dates: end: 20100123
  4. ZANIDIP [Suspect]
     Dates: end: 20100124
  5. CACIT D3 [Suspect]
     Dates: end: 20100124
  6. LYRICA [Suspect]
     Dates: end: 20100124
  7. HYDROCORTISONE [Concomitant]
  8. CEFIXIME [Concomitant]
     Indication: URINARY TRACT INFECTION
     Dates: start: 20091214, end: 20100107
  9. OFLOXACIN [Concomitant]
     Indication: URINARY TRACT INFECTION
     Dates: start: 20091214, end: 20100107
  10. PRISTINAMYCIN [Concomitant]
     Indication: URINARY TRACT INFECTION
     Dates: start: 20091214, end: 20100107
  11. OMEPRAZOLE [Concomitant]
     Dates: start: 20100110

REACTIONS (2)
  - BONE MARROW FAILURE [None]
  - PANCYTOPENIA [None]
